FAERS Safety Report 8793241 (Version 1)
Quarter: 2012Q4

REPORT INFORMATION
  Report Type: 
  Country: US (occurrence: US)
  Receive Date: 20120918
  Receipt Date: 20120918
  Transmission Date: 20130627
  Serious: Yes (Other)
  Sender: FDA-Public Use
  Company Number: US-MERCK-1209USA005917

PATIENT

DRUGS (1)
  1. SAPHRIS [Suspect]
     Dosage: 10 mg, bid
     Route: 048

REACTIONS (4)
  - Contusion [Unknown]
  - Swelling face [Unknown]
  - Torticollis [Unknown]
  - Ocular hyperaemia [Unknown]
